FAERS Safety Report 9383381 (Version 1)
Quarter: 2013Q3

REPORT INFORMATION
  Report Type: Spontaneous
  Country: FR (occurrence: FR)
  Receive Date: 20130704
  Receipt Date: 20130704
  Transmission Date: 20140515
  Serious: Yes (Disabling, Other)
  Sender: FDA-Public Use
  Company Number: FR-009507513-1307FRA000459

PATIENT
  Sex: Female

DRUGS (2)
  1. FOSAMAX [Suspect]
     Dosage: UNK
     Route: 048
     Dates: start: 2004, end: 200702
  2. FOSAVANCE [Suspect]
     Dosage: 1 DF, QW
     Route: 048
     Dates: start: 200702, end: 200708

REACTIONS (1)
  - Osteonecrosis [Recovered/Resolved with Sequelae]
